FAERS Safety Report 5920252-6 (Version None)
Quarter: 2008Q4

REPORT INFORMATION
  Report Type: 
  Country: None (occurrence: None)
  Receive Date: 20081016
  Receipt Date: 20081015
  Transmission Date: 20090506
  Serious: Yes (Other)
  Sender: FDA-Public Use
  Company Number: US-BRISTOL-MYERS SQUIBB COMPANY-14370720

PATIENT
  Age: 56 Year
  Sex: Male
  Weight: 77 kg

DRUGS (5)
  1. SUSTIVA [Suspect]
     Indication: HIV INFECTION
     Dates: start: 20010101
  2. LISINOPRIL [Suspect]
     Dates: start: 20080701
  3. EPZICOM [Suspect]
     Indication: HIV INFECTION
     Dates: start: 20010101
  4. LIPITOR [Suspect]
     Dates: start: 20080701
  5. LORAZEPAM [Concomitant]

REACTIONS (2)
  - LYMPHOCYTE COUNT INCREASED [None]
  - VIRAL LOAD INCREASED [None]
